FAERS Safety Report 20815997 (Version 2)
Quarter: 2022Q2

REPORT INFORMATION
  Report Type: Spontaneous
  Country: US (occurrence: US)
  Receive Date: 20220511
  Receipt Date: 20220602
  Transmission Date: 20220721
  Serious: No
  Sender: FDA-Public Use
  Company Number: US-009507513-2205USA001454

PATIENT
  Age: 76 Year
  Sex: Male

DRUGS (2)
  1. MOLNUPIRAVIR [Suspect]
     Active Substance: MOLNUPIRAVIR
     Indication: COVID-19
     Dosage: 4 CAPSULES (800 MILLIGRAM), Q12H, FOR 5 DAYS
     Route: 048
     Dates: start: 20220417, end: 20220421
  2. HUMIRA [Suspect]
     Active Substance: ADALIMUMAB
     Dosage: UNK, QOW

REACTIONS (1)
  - SARS-CoV-2 test positive [Not Recovered/Not Resolved]

NARRATIVE: CASE EVENT DATE: 20220502
